FAERS Safety Report 25249256 (Version 2)
Quarter: 2025Q3

REPORT INFORMATION
  Report Type: Report from Study
  Country: US (occurrence: US)
  Receive Date: 20250429
  Receipt Date: 20250810
  Transmission Date: 20251021
  Serious: Yes (Death)
  Sender: ALEXION PHARMACEUTICALS
  Company Number: US-AstraZeneca-CH-00856989A

PATIENT
  Age: 86 Year
  Sex: Male

DRUGS (1)
  1. OLAPARIB [Suspect]
     Active Substance: OLAPARIB
     Route: 065
     Dates: start: 20240601, end: 20240601

REACTIONS (1)
  - Death [Fatal]

NARRATIVE: CASE EVENT DATE: 20240601
